FAERS Safety Report 17397173 (Version 2)
Quarter: 2020Q1

REPORT INFORMATION
  Report Type: Spontaneous
  Country: US (occurrence: US)
  Receive Date: 20200210
  Receipt Date: 20200330
  Transmission Date: 20200409
  Serious: Yes (Other)
  Sender: FDA-Public Use
  Company Number: US-JAZZ-2020-US-001491

PATIENT
  Sex: Male

DRUGS (8)
  1. ASPIRIN [ACETYLSALICYLIC ACID] [Concomitant]
     Active Substance: ASPIRIN
  2. SIMVASTATIN. [Concomitant]
     Active Substance: SIMVASTATIN
  3. DULAGLUTIDE. [Concomitant]
     Active Substance: DULAGLUTIDE
  4. SUNOSI [Suspect]
     Active Substance: SOLRIAMFETOL
     Indication: SOMNOLENCE
     Dosage: 37.5 MG (1/2 OF 75MG TABLET DAILY)
     Dates: start: 202001
  5. METFORMIN [Concomitant]
     Active Substance: METFORMIN HYDROCHLORIDE
  6. SUNOSI [Suspect]
     Active Substance: SOLRIAMFETOL
     Dosage: 150 MG
  7. ZYRTEC [Concomitant]
     Active Substance: CETIRIZINE HYDROCHLORIDE
  8. SUNOSI [Suspect]
     Active Substance: SOLRIAMFETOL
     Indication: SLEEP APNOEA SYNDROME
     Dosage: 37.5 MG (1/4 OF 150MG TABLET DAILY)

REACTIONS (5)
  - Atrial fibrillation [Unknown]
  - Drug titration error [Unknown]
  - Wrong technique in product usage process [Unknown]
  - Nervousness [Recovering/Resolving]
  - Tachycardia [Not Recovered/Not Resolved]
